FAERS Safety Report 7302763-4 (Version None)
Quarter: 2011Q1

REPORT INFORMATION
  Report Type: 
  Country: None (occurrence: None)
  Receive Date: 20110218
  Receipt Date: 20081031
  Transmission Date: 20110831
  Serious: Yes (Hospitalization)
  Sender: FDA-Public Use
  Company Number: PHHY2008FR25786

PATIENT
  Sex: Female

DRUGS (5)
  1. ESCITALOPRAM [Suspect]
     Dosage: 20 MG, QD
     Route: 048
     Dates: end: 20080414
  2. NISISCO [Suspect]
     Dosage: 1 DF, QD
     Route: 048
  3. ACTONEL [Concomitant]
     Dosage: 35 MG, QW
  4. TEGRETOL [Suspect]
     Indication: EPILEPSY
     Dosage: 400 MG, TID
     Route: 048
  5. INIPOMP [Suspect]
     Dosage: 20 MG, QD
     Route: 048

REACTIONS (4)
  - HYPONATRAEMIA [None]
  - TREMOR [None]
  - CONVULSION [None]
  - APHASIA [None]
